FAERS Safety Report 5745401-4 (Version None)
Quarter: 2008Q2

REPORT INFORMATION
  Report Type: 
  Country: None (occurrence: None)
  Receive Date: 20080521
  Receipt Date: 20080515
  Transmission Date: 20081010
  Serious: Yes (Other)
  Sender: FDA-Public Use
  Company Number: SK-AMGEN-UK273870

PATIENT
  Sex: Female

DRUGS (5)
  1. ARANESP [Suspect]
     Indication: RENAL FAILURE CHRONIC
     Route: 058
     Dates: start: 20080224, end: 20080328
  2. BISOPROLOL FUMARATE [Concomitant]
     Dates: start: 20040303
  3. SILYMARIN [Concomitant]
     Dates: start: 20011126
  4. AMINO ACIDS [Concomitant]
     Dates: start: 20050527
  5. LACIDIPINE [Concomitant]
     Dates: start: 20060426

REACTIONS (2)
  - DERMATITIS ALLERGIC [None]
  - RASH MACULO-PAPULAR [None]
